FAERS Safety Report 7657379-7 (Version None)
Quarter: 2011Q3

REPORT INFORMATION
  Report Type: 
  Country: None (occurrence: None)
  Receive Date: 20110804
  Receipt Date: 20110729
  Transmission Date: 20111222
  Serious: Yes (Death)
  Sender: FDA-Public Use
  Company Number: PHHY2011JP69000

PATIENT
  Sex: Female

DRUGS (2)
  1. PREDNISOLONE [Concomitant]
     Indication: INTERSTITIAL LUNG DISEASE
     Dosage: UNK
  2. NEORAL [Suspect]
     Indication: INTERSTITIAL LUNG DISEASE
     Dosage: 4 MG/KG, UNK

REACTIONS (1)
  - INTERSTITIAL LUNG DISEASE [None]
